FAERS Safety Report 7712721-3 (Version None)
Quarter: 2011Q3

REPORT INFORMATION
  Report Type: 
  Country: None (occurrence: None)
  Receive Date: 20110826
  Receipt Date: 20110812
  Transmission Date: 20111222
  Serious: Yes (Hospitalization)
  Sender: FDA-Public Use
  Company Number: US-GLAXOSMITHKLINE-A0834838A

PATIENT
  Age: 67 Year
  Sex: Female

DRUGS (7)
  1. AVANDIA [Suspect]
     Indication: DIABETES MELLITUS
     Dosage: 4MG TWICE PER DAY
     Route: 048
     Dates: start: 20040101, end: 20080306
  2. AMARYL [Concomitant]
  3. ACIPHEX [Concomitant]
  4. PROZAC [Concomitant]
  5. AVANDAMET [Suspect]
     Indication: DIABETES MELLITUS
     Route: 048
     Dates: end: 20050502
  6. HYZAAR [Concomitant]
  7. TOPROL-XL [Concomitant]

REACTIONS (6)
  - HYPERTENSION [None]
  - CARDIAC DISORDER [None]
  - TRANSIENT ISCHAEMIC ATTACK [None]
  - MYOCARDIAL INFARCTION [None]
  - CORONARY ARTERY BYPASS [None]
  - CEREBROVASCULAR ACCIDENT [None]
